FAERS Safety Report 4497658-8 (Version None)
Quarter: 2004Q4

REPORT INFORMATION
  Report Type: 
  Country: None (occurrence: None)
  Receive Date: 20041108
  Receipt Date: 20040927
  Transmission Date: 20050328
  Serious: Yes (Other)
  Sender: FDA-Public Use
  Company Number: FR-JNJFOC-20040908783

PATIENT
  Sex: Male
  Weight: 25 kg

DRUGS (1)
  1. CONCERTA [Suspect]
     Route: 049
     Dates: start: 20040925, end: 20040925

REACTIONS (4)
  - AGITATION [None]
  - ANXIETY [None]
  - DYSKINESIA [None]
  - LOGORRHOEA [None]
